FAERS Safety Report 5650418-4 (Version None)
Quarter: 2008Q1

REPORT INFORMATION
  Report Type: 
  Country: None (occurrence: None)
  Receive Date: 20080305
  Receipt Date: 20080226
  Transmission Date: 20080703
  Serious: Yes (Disabling)
  Sender: FDA-Public Use
  Company Number: US-JNJFOC-20080206892

PATIENT
  Sex: Male
  Weight: 95.26 kg

DRUGS (2)
  1. LEVAQUIN [Suspect]
     Indication: EPIDIDYMITIS
     Route: 048
  2. ALEVE [Concomitant]
     Indication: TESTICULAR PAIN
     Route: 048

REACTIONS (14)
  - ABNORMAL FAECES [None]
  - ELECTROENCEPHALOGRAM ABNORMAL [None]
  - FOOD INTOLERANCE [None]
  - HEADACHE [None]
  - INSOMNIA [None]
  - NEUROPATHY PERIPHERAL [None]
  - PANIC ATTACK [None]
  - PETIT MAL EPILEPSY [None]
  - RASH [None]
  - SUICIDAL IDEATION [None]
  - TENDONITIS [None]
  - TREMOR [None]
  - VISUAL DISTURBANCE [None]
  - WEIGHT DECREASED [None]
